FAERS Safety Report 13433212 (Version 1)
Quarter: 2017Q2

REPORT INFORMATION
  Report Type: Spontaneous
  Country: US (occurrence: US)
  Receive Date: 20170412
  Receipt Date: 20170412
  Transmission Date: 20170830
  Serious: Yes (Hospitalization)
  Sender: FDA-Public Use
  Company Number: US-ACTELION-A-NJ2017-152253

PATIENT
  Age: 74 Year
  Sex: Male

DRUGS (2)
  1. VALCHLOR [Suspect]
     Active Substance: MECHLORETHAMINE
     Indication: MYCOSIS FUNGOIDES
     Dosage: DAILY TO LEFT ARM
     Route: 061
     Dates: start: 20170216
  2. BEXAROTENE. [Concomitant]
     Active Substance: BEXAROTENE
     Dosage: UNK

REACTIONS (1)
  - Oedema [Unknown]
